FAERS Safety Report 9314444 (Version 1)
Quarter: 2013Q2

REPORT INFORMATION
  Report Type: Spontaneous
  Country: US (occurrence: US)
  Receive Date: 20130529
  Receipt Date: 20130529
  Transmission Date: 20140414
  Serious: Yes (Other)
  Sender: FDA-Public Use
  Company Number: US-PFIZER INC-2013161355

PATIENT
  Age: 18 Year
  Sex: Male

DRUGS (2)
  1. VANCOMYCIN HCL [Suspect]
     Dosage: 1750 MG, EVERY 8 HOURS
     Route: 042
  2. ZOSYN [Suspect]
     Dosage: UNK

REACTIONS (1)
  - Renal failure acute [Unknown]
